FAERS Safety Report 6919158-5 (Version None)
Quarter: 2010Q3

REPORT INFORMATION
  Report Type: 
  Country: None (occurrence: None)
  Receive Date: 20100811
  Receipt Date: 20100730
  Transmission Date: 20110219
  Serious: Yes (Other)
  Sender: FDA-Public Use
  Company Number: GB-ROCHE-718727

PATIENT
  Sex: Male
  Weight: 3.2 kg

DRUGS (3)
  1. HERCEPTIN [Suspect]
     Route: 064
  2. DIGOXIN [Suspect]
     Indication: EJECTION FRACTION DECREASED
     Route: 064
  3. EPIRUBICIN [Suspect]
     Route: 064

REACTIONS (2)
  - PREGNANCY [None]
  - TRANSIENT TACHYPNOEA OF THE NEWBORN [None]
